FAERS Safety Report 6222992-0 (Version None)
Quarter: 2009Q2

REPORT INFORMATION
  Report Type: 
  Country: None (occurrence: None)
  Receive Date: 20090609
  Receipt Date: 20090529
  Transmission Date: 20091009
  Serious: Yes (Hospitalization, Other)
  Sender: FDA-Public Use
  Company Number: 2009AP001787

PATIENT
  Age: 49 Year
  Sex: Male

DRUGS (4)
  1. PAROXETINE HCL [Suspect]
     Indication: DEPRESSION
     Dosage: 20 MG; QD
     Dates: start: 20070401
  2. TOPIRAMATE [Concomitant]
  3. DULOXETINE HYDROCHLORIDE (DULOXETINE HYDROCHLORIDE) [Concomitant]
  4. VALPROIC ACID [Concomitant]

REACTIONS (16)
  - AGITATION [None]
  - ANOREXIA [None]
  - CHILLS [None]
  - CONDITION AGGRAVATED [None]
  - DEPRESSION [None]
  - ELECTROENCEPHALOGRAM ABNORMAL [None]
  - ENCEPHALOMALACIA [None]
  - ENCEPHALOPATHY [None]
  - FAECAL INCONTINENCE [None]
  - GRAND MAL CONVULSION [None]
  - HYPERHIDROSIS [None]
  - LACK OF SPONTANEOUS SPEECH [None]
  - MYOCLONUS [None]
  - NUCLEAR MAGNETIC RESONANCE IMAGING BRAIN ABNORMAL [None]
  - URINARY INCONTINENCE [None]
  - WEIGHT INCREASED [None]
